FAERS Safety Report 19024086 (Version 1)
Quarter: 2021Q1

REPORT INFORMATION
  Report Type: Spontaneous
  Country: US (occurrence: US)
  Receive Date: 20210318
  Receipt Date: 20210318
  Transmission Date: 20210420
  Serious: Yes (Other)
  Sender: FDA-Public Use
  Company Number: US-SA-2021SA080267

PATIENT

DRUGS (1)
  1. AVAPRO [Suspect]
     Active Substance: IRBESARTAN
     Dosage: UNK

REACTIONS (1)
  - Thrombocytopenia [Unknown]
